FAERS Safety Report 21544972 (Version 1)
Quarter: 2022Q4

REPORT INFORMATION
  Report Type: Spontaneous
  Country: US (occurrence: None)
  Receive Date: 20221101
  Receipt Date: 20221101
  Transmission Date: 20230112
  Serious: No
  Sender: FDA-Public Use
  Company Number: None

PATIENT
  Sex: Male

DRUGS (1)
  1. ABIRATERONE [Suspect]
     Active Substance: ABIRATERONE
     Dosage: FREQUENCY : DAILY;?
     Route: 048

REACTIONS (6)
  - Conjunctivitis [None]
  - Ear infection [None]
  - Middle ear effusion [None]
  - Gastric disorder [None]
  - Diarrhoea [None]
  - Therapy interrupted [None]
